FAERS Safety Report 5704771-3 (Version None)
Quarter: 2008Q2

REPORT INFORMATION
  Report Type: 
  Country: None (occurrence: None)
  Receive Date: 20080414
  Receipt Date: 20080402
  Transmission Date: 20081010
  Serious: Yes (Other)
  Sender: FDA-Public Use
  Company Number: US-PFIZER INC-2008016710

PATIENT
  Sex: Female
  Weight: 139.1 kg

DRUGS (15)
  1. CHANTIX [Suspect]
     Indication: SMOKING CESSATION THERAPY
     Route: 048
  2. SKELAXIN [Concomitant]
  3. GABAPENTIN [Concomitant]
  4. ADVAIR HFA [Concomitant]
  5. MONTELUKAST SODIUM [Concomitant]
  6. ZYRTEC [Concomitant]
  7. KLONOPIN [Concomitant]
  8. CYMBALTA [Concomitant]
  9. BENICAR HCT [Concomitant]
  10. CRESTOR [Concomitant]
  11. ZETIA [Concomitant]
  12. MOBIC [Concomitant]
  13. ASPIRIN [Concomitant]
  14. IBUPROFEN [Concomitant]
  15. TYLENOL (CAPLET) [Concomitant]

REACTIONS (12)
  - BLOOD GLUCOSE INCREASED [None]
  - CARDIAC FAILURE CONGESTIVE [None]
  - CARDIOMEGALY [None]
  - DRUG INEFFECTIVE [None]
  - DRUG WITHDRAWAL SYNDROME [None]
  - DYSPHAGIA [None]
  - FATIGUE [None]
  - HYPERGLYCAEMIA [None]
  - HYPOGLYCAEMIA [None]
  - IRRITABILITY [None]
  - LYMPHADENOPATHY [None]
  - STRESS [None]
